FAERS Safety Report 25571690 (Version 1)
Quarter: 2025Q3

REPORT INFORMATION
  Report Type: Spontaneous
  Country: US (occurrence: None)
  Receive Date: 20250717
  Receipt Date: 20250717
  Transmission Date: 20251021
  Serious: Yes (Hospitalization)
  Sender: FDA-CTU
  Company Number: None

PATIENT
  Sex: Female

DRUGS (11)
  1. PULMOZYME [Suspect]
     Active Substance: DORNASE ALFA
     Indication: Cystic fibrosis
     Route: 055
     Dates: start: 20240824
  2. ACID REDUCER TAB 10MG [Concomitant]
  3. ADVAIR DISKUS [Concomitant]
     Active Substance: FLUTICASONE PROPIONATE\SALMETEROL XINAFOATE
  4. ALTERA [Concomitant]
  5. APAP/CODEINE TAB 300-30MG [Concomitant]
  6. BENTYL CAP 10MG [Concomitant]
  7. BENZONATATE CAP 100MG [Concomitant]
  8. CALCIUM TAB 500MG [Concomitant]
  9. CARAFATE [Concomitant]
     Active Substance: SUCRALFATE
  10. CAYSTON [Concomitant]
     Active Substance: AZTREONAM
  11. CLARITIN CAP 10MG [Concomitant]

REACTIONS (5)
  - Fatigue [None]
  - Sleep disorder [None]
  - Loss of personal independence in daily activities [None]
  - Diarrhoea [None]
  - Social problem [None]
